FAERS Safety Report 16040601 (Version 1)
Quarter: 2019Q1

REPORT INFORMATION
  Report Type: Spontaneous
  Country: US (occurrence: US)
  Receive Date: 20190306
  Receipt Date: 20190306
  Transmission Date: 20190418
  Serious: No
  Sender: FDA-Public Use
  Company Number: US-KYOWAKIRIN-2018BKK009934

PATIENT

DRUGS (2)
  1. POTELIGEO [Suspect]
     Active Substance: MOGAMULIZUMAB-KPKC
     Indication: T-CELL LYMPHOMA
     Dosage: 1 MG/KG, ONCE WEEKLY FOR FIVE WEEKS, THAN ONCE EVERY OTHER WEEK
     Route: 042
     Dates: start: 201810, end: 20181114
  2. POTELIGEO [Suspect]
     Active Substance: MOGAMULIZUMAB-KPKC
     Indication: MYCOSIS FUNGOIDES
     Dosage: 1 MG/KG, ONCE WEEKLY FOR FIVE WEEKS, THAN ONCE EVERY OTHER WEEK
     Route: 042
     Dates: start: 201811

REACTIONS (3)
  - Malaise [Recovered/Resolved]
  - Diarrhoea [Recovered/Resolved]
  - Blood creatinine increased [Recovered/Resolved]

NARRATIVE: CASE EVENT DATE: 201810
